FAERS Safety Report 17335653 (Version 10)
Quarter: 2020Q3

REPORT INFORMATION
  Report Type: Report from Study
  Country: US (occurrence: US)
  Receive Date: 20200128
  Receipt Date: 20200727
  Transmission Date: 20201102
  Serious: Yes (Hospitalization, Disabling)
  Sender: FDA-Public Use
  Company Number: US-ACTELION-A-NJ2020-200983

PATIENT
  Sex: Female
  Weight: 68.48 kg

DRUGS (5)
  1. UPTRAVI [Suspect]
     Active Substance: SELEXIPAG
     Indication: PULMONARY ARTERIAL HYPERTENSION
     Dosage: 800 MCG, BID
     Route: 048
     Dates: start: 20200106
  2. LETAIRIS [Suspect]
     Active Substance: AMBRISENTAN
     Indication: PULMONARY ARTERIAL HYPERTENSION
     Dosage: 10 MG, QD
     Route: 065
     Dates: start: 20191015
  3. UPTRAVI [Suspect]
     Active Substance: SELEXIPAG
     Dosage: 1000 MCG, BID
     Route: 048
  4. UPTRAVI [Suspect]
     Active Substance: SELEXIPAG
     Dosage: 600 MCG, BID
     Route: 048
  5. SILDENAFIL CITRATE. [Suspect]
     Active Substance: SILDENAFIL CITRATE
     Indication: PULMONARY ARTERIAL HYPERTENSION
     Dosage: 25 MG Q8 HOURS
     Route: 065
     Dates: start: 20190827

REACTIONS (12)
  - Oxygen saturation increased [Unknown]
  - Chronic obstructive pulmonary disease [Recovered/Resolved]
  - General physical health deterioration [Unknown]
  - Therapy non-responder [Unknown]
  - Oxygen saturation decreased [Not Recovered/Not Resolved]
  - Transplant evaluation [Unknown]
  - Dyspnoea [Not Recovered/Not Resolved]
  - Lymphadenopathy [Unknown]
  - Lower respiratory tract infection [Unknown]
  - Ventilation/perfusion scan abnormal [Unknown]
  - Loss of personal independence in daily activities [Unknown]
  - Pneumonia [Unknown]
